FAERS Safety Report 20306387 (Version 2)
Quarter: 2022Q1

REPORT INFORMATION
  Report Type: Spontaneous
  Country: NL (occurrence: NL)
  Receive Date: 20220106
  Receipt Date: 20220111
  Transmission Date: 20220424
  Serious: Yes (Death)
  Sender: FDA-Public Use
  Company Number: None

PATIENT
  Age: 85 Year
  Sex: Male
  Weight: 71.9 kg

DRUGS (13)
  1. DESLORATADINE [Suspect]
     Active Substance: DESLORATADINE
     Indication: Product used for unknown indication
     Dosage: 5 MILLIGRAM,1X PER DAG 1 STUK
     Dates: start: 20211129
  2. MICONAZOLE [Suspect]
     Active Substance: MICONAZOLE
     Indication: Product used for unknown indication
     Dosage: UNK,2X PER DAG 1 DOSIS
     Dates: start: 20211125
  3. PFIZER-BIONTECH COVID-19 VACCINE [Suspect]
     Active Substance: TOZINAMERAN
     Indication: COVID-19 immunisation
     Dosage: 1 DOSAGE FORM
     Dates: start: 20211129
  4. EUTHYROX [Concomitant]
     Active Substance: LEVOTHYROXINE SODIUM
     Dosage: 125 MICROGRAM,TABLET, 125 MCG (MICROGRAM)
  5. OMEPRAZOLE [Concomitant]
     Active Substance: OMEPRAZOLE
     Dosage: 40 MILLIGRAM, MAAGSAPRESISTENTE CAPSULE, 40 MG (MILLIGRAM)
  6. ASPIRIN [Concomitant]
     Active Substance: ASPIRIN
     Dosage: 80 MILLIGRAM,TABLET, 80 MG (MILLIGRAM)
  7. CHOLECALCIFEROL [Concomitant]
     Active Substance: CHOLECALCIFEROL
     Dosage: TABLET, 800 EENHEDEN
  8. POLYETHYLENE GLYCOLS [Concomitant]
     Active Substance: POLYETHYLENE GLYCOLS
     Dosage: 1 GRAM PER GRAM,POEDER VOOR DRANK, 1 GRAM PER GRAM
  9. METFORMIN HYDROCHLORIDE [Concomitant]
     Active Substance: METFORMIN HYDROCHLORIDE
     Dosage: 500 MILLIGRAM,TABLET, 500 MG (MILLIGRAM)
  10. SOLIFENACIN [Concomitant]
     Active Substance: SOLIFENACIN
     Dosage: 5 MILLIGRAM,TABLET, 5 MG (MILLIGRAM)
  11. INSULINE LISPRO [Concomitant]
     Dosage: INJECTIEVLOEISTOF, 100 EENHEDEN/ML (EENHEDEN PER MILLILITER)
  12. LEVERTRAN [Concomitant]
     Dosage: ZALF VOOR RECTAAL GEBRUIK, 30/10 MG/G (MILLIGRAM PER GRAM)
  13. LEVOTHYROXINE SODIUM [Concomitant]
     Active Substance: LEVOTHYROXINE SODIUM
     Dosage: UNK

REACTIONS (8)
  - Hypophagia [Fatal]
  - Oxygen saturation decreased [Fatal]
  - Depressed level of consciousness [Fatal]
  - Malaise [Unknown]
  - Pyrexia [Recovering/Resolving]
  - Fatigue [Not Recovered/Not Resolved]
  - Balance disorder [Not Recovered/Not Resolved]
  - Somnolence [Not Recovered/Not Resolved]

NARRATIVE: CASE EVENT DATE: 20211130
